FAERS Safety Report 7251025-2 (Version None)
Quarter: 2011Q1

REPORT INFORMATION
  Report Type: 
  Country: None (occurrence: None)
  Receive Date: 20110128
  Receipt Date: 20110114
  Transmission Date: 20110831
  Serious: Yes (Hospitalization, Other)
  Sender: FDA-Public Use
  Company Number: B0696398A

PATIENT
  Sex: Female
  Weight: 77 kg

DRUGS (8)
  1. LAPATINIB [Suspect]
     Indication: GLIOBLASTOMA
     Dosage: 1000MG PER DAY
     Route: 048
     Dates: start: 20100927
  2. DEXAMETHASONE [Concomitant]
     Indication: GLIOBLASTOMA
     Dosage: 2MG PER DAY
     Route: 048
     Dates: start: 20101213
  3. ZANTAC [Concomitant]
     Indication: PROPHYLAXIS
     Dosage: 150MG TWICE PER DAY
     Route: 048
     Dates: start: 20100927
  4. RISPERDAL [Concomitant]
     Indication: AGITATION
     Dosage: .5MG PER DAY
     Route: 048
     Dates: start: 20100927
  5. SALOSPIR [Concomitant]
     Dosage: 100MG PER DAY
     Route: 048
     Dates: start: 20100927, end: 20101221
  6. SOLOSA [Concomitant]
     Indication: DIABETES MELLITUS
     Dosage: 4MG PER DAY
     Route: 048
     Dates: start: 19951111
  7. DILATREND [Concomitant]
     Indication: HYPERTENSION
     Dosage: 3.125MG TWICE PER DAY
     Route: 048
     Dates: start: 20100927
  8. TEMODAL [Suspect]
     Indication: GLIOBLASTOMA
     Dosage: 350MG CYCLIC
     Route: 048
     Dates: start: 20100927

REACTIONS (4)
  - LEUKOPENIA [None]
  - PYREXIA [None]
  - INFECTION [None]
  - THROMBOCYTOPENIA [None]
